FAERS Safety Report 13913151 (Version 1)
Quarter: 2017Q3

REPORT INFORMATION
  Report Type: Spontaneous
  Country: US (occurrence: US)
  Receive Date: 20170828
  Receipt Date: 20170828
  Transmission Date: 20171127
  Serious: No
  Sender: FDA-Public Use
  Company Number: US-ROCHE-1123942

PATIENT
  Sex: Female
  Weight: 54.65 kg

DRUGS (5)
  1. NUTROPIN AQ [Suspect]
     Active Substance: SOMATROPIN
     Indication: GROWTH HORMONE DEFICIENCY
     Route: 065
  2. PRINIVIL [Concomitant]
     Active Substance: LISINOPRIL
     Route: 065
  3. CITRICAL [Concomitant]
     Active Substance: CALCIUM CITRATE
  4. ROCALTROL [Concomitant]
     Active Substance: CALCITRIOL
     Dosage: 0.75 MG IN MORNING AND 0.50 MG IN EVENING
     Route: 065
  5. SLOW-MAG [Concomitant]
     Active Substance: MAGNESIUM CHLORIDE

REACTIONS (3)
  - Hypotension [Unknown]
  - Sinus headache [Unknown]
  - Muscle twitching [Unknown]
